FAERS Safety Report 24622961 (Version 4)
Quarter: 2025Q3

REPORT INFORMATION
  Report Type: Report from Study
  Country: US (occurrence: US)
  Receive Date: 20241115
  Receipt Date: 20250809
  Transmission Date: 20251021
  Serious: Yes (Hospitalization, Other)
  Sender: ALEXION PHARMACEUTICALS
  Company Number: US-AstraZeneca-CH-00744392A

PATIENT
  Age: 47 Year
  Sex: Female
  Weight: 47.8 kg

DRUGS (45)
  1. CAPIVASERTIB [Suspect]
     Active Substance: CAPIVASERTIB
     Dosage: 200 MILLIGRAM, BID
     Dates: start: 20241025
  2. CAPIVASERTIB [Suspect]
     Active Substance: CAPIVASERTIB
     Dosage: 200 MILLIGRAM, BID
     Dates: start: 20241119
  3. FASLODEX [Suspect]
     Active Substance: FULVESTRANT
     Dosage: 500 MILLIGRAM, QD
     Dates: start: 20241107, end: 20241107
  4. FASLODEX [Suspect]
     Active Substance: FULVESTRANT
     Dosage: 500 MILLIGRAM, QD
     Dates: start: 20241121, end: 20241121
  5. FASLODEX [Suspect]
     Active Substance: FULVESTRANT
     Dosage: 500 MILLIGRAM, QD
     Dates: start: 20241210, end: 20241210
  6. TYLENOL [Concomitant]
     Active Substance: ACETAMINOPHEN
     Indication: Pain
     Dosage: 325 MILLIGRAM, BID
     Dates: start: 20241011, end: 20241022
  7. TYLENOL [Concomitant]
     Active Substance: ACETAMINOPHEN
     Dates: start: 20241130, end: 20241130
  8. TYLENOL [Concomitant]
     Active Substance: ACETAMINOPHEN
     Dosage: 1000 MILLIGRAM, Q8H
     Dates: start: 20241201, end: 20241201
  9. ALPHA LIPOIC ACID [Concomitant]
     Active Substance: .ALPHA.-LIPOIC ACID
     Dosage: 600 MILLIGRAM, QD
  10. VITAMIN C [Concomitant]
     Active Substance: ASCORBIC ACID
     Dosage: 500 MILLIGRAM, QD
     Dates: start: 20241201, end: 20241201
  11. TESSALON [Concomitant]
     Active Substance: BENZONATATE
     Indication: Oropharyngeal pain
     Dosage: 200 MILLIGRAM, TID
     Dates: start: 20240920, end: 20241204
  12. CEPACOL [Concomitant]
     Active Substance: BENZOCAINE
     Indication: Oropharyngeal pain
     Dosage: UNK MILLIGRAM, QD
     Dates: start: 20241201, end: 20241201
  13. ZYRTEC [Concomitant]
     Active Substance: CETIRIZINE HYDROCHLORIDE
     Dosage: 10 MILLIGRAM, QD
     Dates: start: 20241202, end: 20241203
  14. VITAMIN D3 [Concomitant]
     Active Substance: CHOLECALCIFEROL
     Dosage: 50000 INTERNATIONAL UNIT, QD
     Dates: start: 20241201, end: 20241201
  15. TUMS [Concomitant]
     Active Substance: CALCIUM CARBONATE
     Dosage: 200 MILLIGRAM, TID
     Dates: start: 20241011, end: 20241011
  16. CYANOCOBALAMIN [Concomitant]
     Active Substance: CYANOCOBALAMIN
  17. TEMOVATE [Concomitant]
     Active Substance: CLOBETASOL PROPIONATE
  18. BENADRYL [Concomitant]
     Active Substance: DIPHENHYDRAMINE HYDROCHLORIDE
     Dosage: 12.5 MILLIGRAM, QD
     Dates: start: 20241130, end: 20241130
  19. LOVENOX [Concomitant]
     Active Substance: ENOXAPARIN SODIUM
     Dosage: 30 MILLIGRAM, QD
     Dates: start: 20241203, end: 20241203
  20. PEPCID [Concomitant]
     Active Substance: FAMOTIDINE
     Dosage: 20 MILLIGRAM, BID
     Dates: start: 20241201, end: 20241203
  21. NEURONTIN [Concomitant]
     Active Substance: GABAPENTIN
     Dosage: 300 MILLIGRAM, QD
     Dates: start: 20240312
  22. HYDROCORTISONE [Concomitant]
     Active Substance: HYDROCORTISONE
  23. OMNIPAQUE [Concomitant]
     Active Substance: IOHEXOL
     Dosage: 100 MILLILITER, QD
     Dates: start: 20241113, end: 20241201
  24. LACTOBACILLUS ACIDOPHILUS [Concomitant]
     Active Substance: LACTOBACILLUS ACIDOPHILUS
  25. LACTATED RINGERS SOLUTION [Concomitant]
     Active Substance: CALCIUM CHLORIDE\POTASSIUM CHLORIDE\SODIUM CHLORIDE\SODIUM LACTATE
     Dosage: 1000 MILLILITER, QD
     Dates: end: 20241130
  26. SYNTHROID [Concomitant]
     Active Substance: LEVOTHYROXINE SODIUM
     Dosage: 25 MICROGRAM, QD
     Dates: start: 20241119
  27. SYNTHROID [Concomitant]
     Active Substance: LEVOTHYROXINE SODIUM
     Dosage: 25 MICROGRAM, QD
     Dates: start: 20241201, end: 20241203
  28. DIPHENHYDRAMINE HYDROCHLORIDE\LIDOCAINE HYDROCHLORIDE\NYSTATIN [Concomitant]
     Active Substance: DIPHENHYDRAMINE HYDROCHLORIDE\LIDOCAINE HYDROCHLORIDE\NYSTATIN
     Dosage: 5 MILLILITER, Q6H
     Dates: start: 20241202, end: 20241203
  29. SOLU-MEDROL [Concomitant]
     Active Substance: METHYLPREDNISOLONE SODIUM SUCCINATE
     Dosage: 0.1 MILLIGRAM/KILOGRAM, QD
     Dates: start: 20241130, end: 20241201
  30. SOLU-MEDROL [Concomitant]
     Active Substance: METHYLPREDNISOLONE SODIUM SUCCINATE
     Dosage: 44 MILLIGRAM, QD
     Dates: start: 20241201, end: 20241201
  31. Metro [Concomitant]
  32. VITAMINS [Concomitant]
     Active Substance: VITAMINS
     Dosage: UNK, QD
  33. ELECTROLYTES NOS [Concomitant]
     Active Substance: ELECTROLYTES NOS
  34. ZOFRAN [Concomitant]
     Active Substance: ONDANSETRON HYDROCHLORIDE
     Indication: Nausea
     Dosage: 4 MILLIGRAM, Q6H
     Dates: start: 20241201, end: 20241203
  35. ROXICODONE [Concomitant]
     Active Substance: OXYCODONE HYDROCHLORIDE
     Indication: Pain
     Dosage: 5 MILLIGRAM, Q4H
     Dates: start: 20241201, end: 20241203
  36. DOCONEXENT [Concomitant]
     Active Substance: DOCONEXENT
     Dosage: 1 UNK, QD
  37. PROTONIX [Concomitant]
     Active Substance: PANTOPRAZOLE SODIUM
     Dosage: 40 MILLIGRAM, QD
     Dates: start: 20241012, end: 20241210
  38. MIRALAX [Concomitant]
     Active Substance: POLYETHYLENE GLYCOL 3350
     Indication: Constipation
     Dosage: 17 GRAM, QD
     Dates: start: 20241203, end: 20241206
  39. Micro K [Concomitant]
     Dosage: 40 MILLIEQUIVALENT, QD
     Dates: start: 20241201, end: 20241203
  40. DELTASONE [Concomitant]
     Active Substance: PREDNISONE
     Dosage: 1 MILLIGRAM/KILOGRAM, QD
     Dates: start: 20241201, end: 20241201
  41. DELTASONE [Concomitant]
     Active Substance: PREDNISONE
     Dosage: 50 MILLIGRAM, QD
     Dates: start: 20241201, end: 20241202
  42. DELTASONE [Concomitant]
     Active Substance: PREDNISONE
     Dosage: 40 MILLIGRAM, QD
     Dates: start: 20241203, end: 20241203
  43. DELTASONE [Concomitant]
     Active Substance: PREDNISONE
     Dosage: 20 MILLIGRAM, BID
     Dates: start: 20241204, end: 20241210
  44. KENALOG [Concomitant]
     Active Substance: TRIAMCINOLONE ACETONIDE
     Dosage: UNK, BID
  45. ENTOCORT [Concomitant]
     Active Substance: BUDESONIDE

REACTIONS (15)
  - Metastases to lymph nodes [Unknown]
  - Metastases to lung [Unknown]
  - Neoplasm malignant [Unknown]
  - Uterine mass [Unknown]
  - Respiratory failure [Unknown]
  - Pulmonary mass [Unknown]
  - Malignant neoplasm progression [Unknown]
  - Dyspnoea [Unknown]
  - Interstitial lung disease [Unknown]
  - Rash [Unknown]
  - Pyrexia [Recovered/Resolved]
  - Metastases to spine [Unknown]
  - Blood glucose increased [Unknown]
  - Protein total decreased [Unknown]
  - Monocyte count decreased [Unknown]
